FAERS Safety Report 5621022-9 (Version None)
Quarter: 2008Q1

REPORT INFORMATION
  Report Type: 
  Country: None (occurrence: None)
  Receive Date: 20080208
  Receipt Date: 20080129
  Transmission Date: 20080703
  Serious: Yes (Other)
  Sender: FDA-Public Use
  Company Number: US-PFIZER INC-2008009744

PATIENT
  Sex: Female
  Weight: 94.545 kg

DRUGS (6)
  1. DILANTIN [Suspect]
     Indication: EPILEPSY
     Dates: start: 20071101, end: 20080127
  2. DILANTIN [Suspect]
     Indication: CONVULSION
  3. NEURONTIN [Concomitant]
  4. KLONOPIN [Concomitant]
  5. PHENOBARBITAL TAB [Concomitant]
  6. KEPPRA [Concomitant]

REACTIONS (4)
  - ANTICONVULSANT DRUG LEVEL DECREASED [None]
  - CONVULSION [None]
  - DRUG INEFFECTIVE [None]
  - MYOCARDIAL INFARCTION [None]
